FAERS Safety Report 17366949 (Version 1)
Quarter: 2020Q1

REPORT INFORMATION
  Report Type: Spontaneous
  Country: JP (occurrence: JP)
  Receive Date: 20200204
  Receipt Date: 20200204
  Transmission Date: 20200409
  Serious: Yes (Other)
  Sender: FDA-Public Use
  Company Number: JP-PFIZER INC-2020035168

PATIENT
  Age: 67 Year
  Sex: Male

DRUGS (1)
  1. METHOTREXATE. [Suspect]
     Active Substance: METHOTREXATE
     Indication: NEOPLASM MALIGNANT
     Dosage: 6120 MG, UNK

REACTIONS (3)
  - Blood creatinine increased [Unknown]
  - Drug level increased [Unknown]
  - Renal disorder [Unknown]
